FAERS Safety Report 10370816 (Version 4)
Quarter: 2014Q3

REPORT INFORMATION
  Report Type: Spontaneous
  Country: US (occurrence: None)
  Receive Date: 20140806
  Receipt Date: 20140822
  Transmission Date: 20150326
  Serious: Yes (Other)
  Sender: FDA-Public Use
  Company Number: AUR-APL-2014-08386

PATIENT
  Age: 65 Year
  Sex: Female
  Weight: 68 kg

DRUGS (1)
  1. ALENDRONATE SODIUM. [Suspect]
     Active Substance: ALENDRONATE SODIUM
     Indication: OSTEOPOROSIS
     Route: 048
     Dates: start: 20140613, end: 20140613

REACTIONS (10)
  - Skin exfoliation [None]
  - Sensory loss [None]
  - Feeling abnormal [None]
  - Urticaria [None]
  - Peripheral swelling [None]
  - Abdominal distension [None]
  - Pruritus [None]
  - Chapped lips [None]
  - Burning sensation [None]
  - Swelling [None]

NARRATIVE: CASE EVENT DATE: 20140613
